FAERS Safety Report 5243928-5 (Version None)
Quarter: 2007Q1

REPORT INFORMATION
  Report Type: 
  Country: None (occurrence: None)
  Receive Date: 20070222
  Receipt Date: 20070214
  Transmission Date: 20070707
  Serious: Yes (Life-Threatening, Hospitalization)
  Sender: FDA-Public Use
  Company Number: US-ELI_LILLY_AND_COMPANY-US200701003974

PATIENT
  Age: 32 Year
  Sex: Female
  Weight: 56.235 kg

DRUGS (2)
  1. SYMBYAX [Suspect]
     Dosage: UNK, UNK
     Dates: start: 20060815, end: 20060816
  2. EFFEXOR [Concomitant]

REACTIONS (2)
  - MENTAL IMPAIRMENT [None]
  - SUICIDAL IDEATION [None]
